FAERS Safety Report 10301680 (Version 1)
Quarter: 2014Q3

REPORT INFORMATION
  Report Type: Report from Study
  Country: TN (occurrence: TN)
  Receive Date: 20140714
  Receipt Date: 20140714
  Transmission Date: 20150326
  Serious: Yes (Death)
  Sender: FDA-Public Use
  Company Number: TN-SA-2014SA090699

PATIENT
  Age: 69 Year
  Sex: Male

DRUGS (3)
  1. AMLODIS [Concomitant]
     Route: 048
  2. PLAVIX [Suspect]
     Active Substance: CLOPIDOGREL BISULFATE
     Indication: CORONARY ARTERY DISEASE
     Dosage: DOSE: 75
     Route: 048
     Dates: start: 20131030, end: 20131129
  3. KARDEGIC [Concomitant]
     Active Substance: ASPIRIN LYSINE
     Route: 048

REACTIONS (2)
  - General physical health deterioration [Fatal]
  - Lung neoplasm malignant [Fatal]

NARRATIVE: CASE EVENT DATE: 201310
